FAERS Safety Report 6746685-6 (Version None)
Quarter: 2010Q2

REPORT INFORMATION
  Report Type: 
  Country: None (occurrence: None)
  Receive Date: 20100528
  Receipt Date: 20100520
  Transmission Date: 20101027
  Serious: Yes (Other)
  Sender: FDA-Public Use
  Company Number: US-PFIZER INC-2010064490

PATIENT
  Sex: Female

DRUGS (3)
  1. XALATAN [Suspect]
     Indication: GLAUCOMA
     Dosage: UNK
  2. HYSITE [Suspect]
     Indication: GLAUCOMA
     Dosage: ONE DROP IN EACH EYE EVERY NIGHT
     Route: 047
     Dates: start: 20100301
  3. CARVEDILOL [Concomitant]
     Indication: GLAUCOMA
     Dosage: UNK
     Route: 047

REACTIONS (3)
  - ABNORMAL SENSATION IN EYE [None]
  - ASTHENOPIA [None]
  - FOREIGN BODY SENSATION IN EYES [None]
